FAERS Safety Report 7430341-5 (Version None)
Quarter: 2011Q2

REPORT INFORMATION
  Report Type: 
  Country: None (occurrence: None)
  Receive Date: 20110421
  Receipt Date: 20110120
  Transmission Date: 20111010
  Serious: No
  Sender: FDA-Public Use
  Company Number: US-ASTRAZENECA-2011SE04040

PATIENT
  Age: 21910 Day
  Sex: Female

DRUGS (7)
  1. TUMS [Concomitant]
  2. NITROGLYCERIN [Concomitant]
  3. ATIVAN [Concomitant]
  4. ASPIRIN [Concomitant]
  5. GAS RELIEF [Concomitant]
  6. TOPROL-XL [Suspect]
     Route: 048
  7. ANTIVERT [Concomitant]

REACTIONS (6)
  - VERTIGO POSITIONAL [None]
  - COUGH [None]
  - ASTHENIA [None]
  - PAIN IN EXTREMITY [None]
  - DYSPNOEA [None]
  - DIZZINESS [None]
